FAERS Safety Report 18292133 (Version 2)
Quarter: 2020Q3

REPORT INFORMATION
  Report Type: Other
  Country: IR (occurrence: IR)
  Receive Date: 20200922
  Receipt Date: 20200924
  Transmission Date: 20201103
  Serious: Yes (Other)
  Sender: FDA-Public Use
  Company Number: IR-ROCHE-2680295

PATIENT

DRUGS (1)
  1. RITUXIMAB. [Suspect]
     Active Substance: RITUXIMAB
     Indication: PEMPHIGUS
     Route: 042

REACTIONS (4)
  - Heart rate increased [Unknown]
  - Supraventricular extrasystoles [Unknown]
  - Electrocardiogram QT prolonged [Unknown]
  - Ventricular extrasystoles [Unknown]
